FAERS Safety Report 6873159-4 (Version None)
Quarter: 2010Q3

REPORT INFORMATION
  Report Type: 
  Country: None (occurrence: None)
  Receive Date: 20100723
  Receipt Date: 20081220
  Transmission Date: 20110219
  Serious: No
  Sender: FDA-Public Use
  Company Number: US-PFIZER INC-2008159342

PATIENT
  Sex: Male
  Weight: 117.93 kg

DRUGS (1)
  1. CHANTIX [Suspect]
     Indication: SMOKING CESSATION THERAPY
     Dosage: UNK
     Dates: start: 20081205

REACTIONS (6)
  - ABNORMAL DREAMS [None]
  - FEELING ABNORMAL [None]
  - IRRITABILITY [None]
  - NAUSEA [None]
  - PAIN [None]
  - TESTICULAR PAIN [None]
